FAERS Safety Report 4738951-0 (Version None)
Quarter: 2005Q3

REPORT INFORMATION
  Report Type: 
  Country: None (occurrence: None)
  Receive Date: 20050801
  Receipt Date: 20040810
  Transmission Date: 20060218
  Serious: Yes (Hospitalization)
  Sender: FDA-Public Use
  Company Number: 208401

PATIENT
  Age: 62 Year
  Sex: Female

DRUGS (2)
  1. HERCEPTIN [Suspect]
     Indication: BREAST CANCER METASTATIC
     Dosage: 186 MG, 1/WEEK, INTRAVENOUS
     Route: 042
     Dates: end: 20040406
  2. NAVELBINE [Concomitant]

REACTIONS (1)
  - CARDIAC FAILURE CONGESTIVE [None]
